FAERS Safety Report 25724099 (Version 2)
Quarter: 2025Q3

REPORT INFORMATION
  Report Type: Report from Study
  Country: US (occurrence: US)
  Receive Date: 20250826
  Receipt Date: 20250828
  Transmission Date: 20251021
  Serious: No
  Sender: SANDOZ
  Company Number: US-SANDOZ-SDZ2025US060913

PATIENT
  Age: 9 Year
  Sex: Female

DRUGS (1)
  1. ADALIMUMAB [Suspect]
     Active Substance: ADALIMUMAB
     Indication: Product used for unknown indication
     Dosage: 40 MG/KG, Q2W, STRENGTH 40MG/0.4ML
     Route: 058

REACTIONS (4)
  - Incorrect dose administered by device [Unknown]
  - Device use error [Unknown]
  - Exposure via skin contact [Unknown]
  - Device issue [Unknown]

NARRATIVE: CASE EVENT DATE: 20250821
